FAERS Safety Report 17662878 (Version 4)
Quarter: 2025Q1

REPORT INFORMATION
  Report Type: Spontaneous
  Country: PL (occurrence: PL)
  Receive Date: 20200413
  Receipt Date: 20250313
  Transmission Date: 20250408
  Serious: Yes (Death, Disabling, Other)
  Sender: GALPHARM INTERNATIONAL
  Company Number: None

PATIENT

DRUGS (58)
  1. DICLOFENAC [Suspect]
     Active Substance: DICLOFENAC
     Indication: Pain
     Dosage: 00 MG, Q12H (100 MG, BID)START DATE: 2014-01
     Route: 065
     Dates: start: 201401
  2. FENTANYL [Suspect]
     Active Substance: FENTANYL
     Indication: Pain
     Route: 002
  3. FENTANYL [Suspect]
     Active Substance: FENTANYL
     Indication: Cancer pain
     Route: 002
  4. FENTANYL [Suspect]
     Active Substance: FENTANYL
     Indication: Cancer pain
     Route: 062
  5. FENTANYL [Suspect]
     Active Substance: FENTANYL
     Indication: Cancer pain
     Route: 048
  6. FENTANYL [Suspect]
     Active Substance: FENTANYL
     Indication: Pain
     Route: 002
  7. FENTANYL [Suspect]
     Active Substance: FENTANYL
     Dosage: 50 MICROGRAM
     Route: 065
     Dates: start: 201603, end: 2016
  8. FENTANYL [Suspect]
     Active Substance: FENTANYL
     Route: 065
  9. FENTANYL [Suspect]
     Active Substance: FENTANYL
     Route: 065
  10. FENTANYL [Suspect]
     Active Substance: FENTANYL
     Route: 065
     Dates: start: 2016, end: 2016
  11. TRAMADOL [Suspect]
     Active Substance: TRAMADOL
     Indication: Pain
     Route: 065
  12. ACETAMINOPHEN [Suspect]
     Active Substance: ACETAMINOPHEN
     Indication: Pain
     Route: 065
  13. DOCETAXEL [Suspect]
     Active Substance: DOCETAXEL
     Indication: Chemotherapy
     Route: 065
  14. DOCETAXEL [Suspect]
     Active Substance: DOCETAXEL
     Indication: Hormone-refractory prostate cancer
  15. DOCETAXEL [Suspect]
     Active Substance: DOCETAXEL
     Indication: Prostate cancer
  16. LEUPROLIDE ACETATE [Suspect]
     Active Substance: LEUPROLIDE ACETATE
     Indication: Prostate cancer
     Route: 065
  17. LEUPROLIDE ACETATE [Suspect]
     Active Substance: LEUPROLIDE ACETATE
     Indication: Hormone therapy
  18. METAMIZOLE [Concomitant]
     Active Substance: METAMIZOLE
     Indication: Product used for unknown indication
     Route: 065
  19. METAMIZOLE [Concomitant]
     Active Substance: METAMIZOLE
     Dosage: 2 DF, UP TO 4 TIMES PER DAY
     Route: 065
  20. GABAPENTIN [Suspect]
     Active Substance: GABAPENTIN
     Indication: Pain
     Route: 065
     Dates: start: 201603, end: 2016
  21. GABAPENTIN [Suspect]
     Active Substance: GABAPENTIN
     Dosage: 900 MILLIGRAM
     Route: 065
  22. GABAPENTIN [Suspect]
     Active Substance: GABAPENTIN
     Dosage: 150 MILLIGRAM, QD
     Route: 065
  23. GABAPENTIN [Suspect]
     Active Substance: GABAPENTIN
     Route: 065
  24. GABAPENTIN [Suspect]
     Active Substance: GABAPENTIN
     Dates: start: 2014
  25. TAPENTADOL [Concomitant]
     Active Substance: TAPENTADOL
     Indication: Product used for unknown indication
     Route: 065
  26. TAPENTADOL [Concomitant]
     Active Substance: TAPENTADOL
     Indication: Polyneuropathy
     Dosage: 150 MILLIGRAM, QD
     Route: 065
  27. TAPENTADOL [Concomitant]
     Active Substance: TAPENTADOL
     Dosage: 100 MILLIGRAM, QD
     Route: 065
  28. TAPENTADOL [Concomitant]
     Active Substance: TAPENTADOL
     Dosage: 0.1 MG, QD (0.05 G, 2X PER DAY (SLOW-RELEASE)
     Route: 065
  29. PREGABALIN [Concomitant]
     Active Substance: PREGABALIN
     Indication: Product used for unknown indication
     Dosage: 0.075 G, 2X PER DAY, (1-0-1)
     Route: 065
  30. PREGABALIN [Concomitant]
     Active Substance: PREGABALIN
     Route: 065
  31. ABIRATERONE [Concomitant]
     Active Substance: ABIRATERONE
     Indication: Product used for unknown indication
     Route: 065
  32. ABIRATERONE [Concomitant]
     Active Substance: ABIRATERONE
     Route: 065
  33. VITAMIN D3 [Concomitant]
     Active Substance: CHOLECALCIFEROL
     Indication: Product used for unknown indication
     Dosage: 4000 INTERNATIONAL UNIT, QD
     Route: 065
     Dates: start: 201603
  34. IRON [Concomitant]
     Active Substance: IRON
     Indication: Product used for unknown indication
     Route: 065
  35. IRON [Concomitant]
     Active Substance: IRON
     Route: 065
  36. NIMESULIDE [Concomitant]
     Active Substance: NIMESULIDE
     Indication: Product used for unknown indication
     Route: 065
  37. NIMESULIDE [Concomitant]
     Active Substance: NIMESULIDE
  38. DENOSUMAB [Suspect]
     Active Substance: DENOSUMAB
     Indication: Prostate cancer
     Route: 058
     Dates: start: 201603
  39. MORPHINE [Concomitant]
     Active Substance: MORPHINE
     Indication: Pain
     Route: 065
  40. MORPHINE [Concomitant]
     Active Substance: MORPHINE
     Indication: Cancer pain
     Route: 048
     Dates: start: 201603
  41. DEXKETOPROFEN [Concomitant]
     Active Substance: DEXKETOPROFEN
     Indication: Product used for unknown indication
     Dosage: 1 DF, UP TO 3 TIMES PER DAY
     Route: 065
  42. KETOPROFEN [Suspect]
     Active Substance: KETOPROFEN
     Indication: Pain
     Dosage: 100 MILLIGRAM, BID
     Route: 065
     Dates: start: 201603
  43. KETOPROFEN [Suspect]
     Active Substance: KETOPROFEN
     Dosage: 100 MILLIGRAM, BIDFIRST ADMIN DATE: 2016-05
     Route: 065
     Dates: start: 201605
  44. KETOPROFEN [Suspect]
     Active Substance: KETOPROFEN
     Dates: start: 201603
  45. MORPHINE SULFATE [Suspect]
     Active Substance: MORPHINE SULFATE
     Indication: Pain
     Dosage: 0.02 G, 4X PER DAY, (FAST-RELEASE )FIRST ADMIN DATE: 2016-03
     Route: 065
     Dates: start: 201603
  46. BICALUTAMIDE [Suspect]
     Active Substance: BICALUTAMIDE
     Indication: Prostate cancer
     Dosage: 50 MILLIGRAM, QD
     Route: 065
     Dates: start: 201603
  47. ACETAMINOPHEN\TRAMADOL [Suspect]
     Active Substance: ACETAMINOPHEN\TRAMADOL
     Indication: Analgesic therapy
     Route: 065
  48. ACETAMINOPHEN\TRAMADOL [Suspect]
     Active Substance: ACETAMINOPHEN\TRAMADOL
     Route: 065
  49. LEUPROLIDE ACETATE [Suspect]
     Active Substance: LEUPROLIDE ACETATE
     Indication: Prostate cancer
     Route: 065
  50. LEUPROLIDE ACETATE [Suspect]
     Active Substance: LEUPROLIDE ACETATE
  51. ABIRATERONE ACETATE [Concomitant]
     Active Substance: ABIRATERONE ACETATE
     Indication: Product used for unknown indication
     Route: 065
     Dates: start: 201403
  52. FENTANYL [Suspect]
     Active Substance: FENTANYL
     Indication: Pain
     Dosage: 50 MICROGRAMFIRST ADMIN DATE: 2016-03 LAST ADMIN DATE: 2016
     Route: 062
     Dates: start: 201603, end: 2016
  53. FENTANYL [Suspect]
     Active Substance: FENTANYL
     Indication: Cancer pain
     Dates: start: 2016, end: 2016
  54. FENTANYL [Suspect]
     Active Substance: FENTANYL
     Dates: start: 2016, end: 2016
  55. FENTANYL [Suspect]
     Active Substance: FENTANYL
  56. FENTANYL [Suspect]
     Active Substance: FENTANYL
     Dates: start: 2016, end: 2016
  57. LEUPROLIDE ACETATE [Suspect]
     Active Substance: LEUPROLIDE ACETATE
     Indication: Hormone therapy
     Route: 065
  58. LEUPROLIDE ACETATE [Suspect]
     Active Substance: LEUPROLIDE ACETATE
     Indication: Prostate cancer

REACTIONS (26)
  - Polyneuropathy [Fatal]
  - Malignant neoplasm progression [Unknown]
  - Prostate cancer [Unknown]
  - Metastases to lung [Unknown]
  - Chronic kidney disease [Fatal]
  - Toxicity to various agents [Recovered/Resolved]
  - Polyneuropathy in malignant disease [Fatal]
  - Confusional state [Fatal]
  - Constipation [Fatal]
  - Hyperaesthesia [Recovered/Resolved]
  - Decreased appetite [Fatal]
  - Allodynia [Fatal]
  - Drug dependence [Unknown]
  - Quality of life decreased [Fatal]
  - Anaemia [Unknown]
  - Metastases to bone [Unknown]
  - Dermatitis allergic [Fatal]
  - Neuropathy peripheral [Not Recovered/Not Resolved]
  - Pain [Unknown]
  - Drug dependence [Unknown]
  - Allodynia [Fatal]
  - Malignant neoplasm progression [Unknown]
  - Polyneuropathy [Fatal]
  - Chronic kidney disease [Fatal]
  - Prostate cancer [Unknown]
  - Metastases to lung [Unknown]

NARRATIVE: CASE EVENT DATE: 20160101
